FAERS Safety Report 22977006 (Version 2)
Quarter: 2023Q4

REPORT INFORMATION
  Report Type: Spontaneous
  Country: US (occurrence: US)
  Receive Date: 20230925
  Receipt Date: 20231213
  Transmission Date: 20240109
  Serious: Yes (Hospitalization)
  Sender: FDA-Public Use
  Company Number: US-CELGENE-USA-20210706277

PATIENT
  Age: 84 Year
  Sex: Male

DRUGS (13)
  1. ABRAXANE [Suspect]
     Active Substance: PACLITAXEL
     Indication: Pancreatic carcinoma
     Dosage: FREQUENCY TEXT: NOT PROVIDED?125 MILLIGRAM
     Dates: start: 20210409
  2. ABRAXANE [Suspect]
     Active Substance: PACLITAXEL
     Dosage: 2 ADMINISTRATIONS TOTAL
     Route: 042
     Dates: end: 20210416
  3. NGM-120 [Suspect]
     Active Substance: NGM-120
     Indication: Pancreatic carcinoma
     Dosage: 125MG
     Route: 042
     Dates: start: 20210409, end: 20210409
  4. NGM-120 [Suspect]
     Active Substance: NGM-120
     Route: 042
  5. NGM-120 [Suspect]
     Active Substance: NGM-120
     Route: 058
  6. GEMCITABINE [Suspect]
     Active Substance: GEMCITABINE
     Indication: Pancreatic carcinoma
     Dosage: 1000 MILLIGRAM
     Route: 042
     Dates: start: 20210409
  7. GEMCITABINE [Suspect]
     Active Substance: GEMCITABINE
     Dosage: 2 ADMINISTRATIONS TOTAL
     Route: 042
     Dates: end: 20210416
  8. COVID-19 VACCINE NOS [Suspect]
     Active Substance: COVID-19 VACCINE NOS
     Indication: Coronavirus infection
     Dosage: FREQUENCY TEXT: NOT PROVIDED?UNKNOWN
     Dates: start: 20210122, end: 20210226
  9. SODIUM CHLORIDE [Concomitant]
     Active Substance: SODIUM CHLORIDE
     Indication: Product used for unknown indication
     Dosage: FREQUENCY TEXT: NOT PROVIDED?500 CC
  10. INSULIN NOS [Concomitant]
     Active Substance: INSULIN NOS
     Indication: Product used for unknown indication
     Dosage: FREQUENCY TEXT: NOT PROVIDED?UNKNOWN
  11. MODERNA COVID-19 VACCINE [Concomitant]
     Active Substance: ELASOMERAN
     Indication: Product used for unknown indication
     Dosage: FREQUENCY TEXT: NOT PROVIDED?UNKNOWN
     Dates: start: 20210122
  12. MODERNA COVID-19 VACCINE [Concomitant]
     Active Substance: ELASOMERAN
     Dosage: FREQUENCY TEXT: NOT PROVIDED?UNKNOWN
     Dates: start: 20210226
  13. METFORMIN [Concomitant]
     Active Substance: METFORMIN HYDROCHLORIDE
     Indication: Product used for unknown indication
     Dosage: FREQUENCY TEXT: NOT PROVIDED

REACTIONS (2)
  - Skin infection [Recovered/Resolved]
  - Prescribed overdose [Unknown]

NARRATIVE: CASE EVENT DATE: 20210420
